FAERS Safety Report 11403056 (Version 1)
Quarter: 2015Q3

REPORT INFORMATION
  Report Type: Spontaneous
  Country: US (occurrence: US)
  Receive Date: 20150821
  Receipt Date: 20150821
  Transmission Date: 20151125
  Serious: No
  Sender: FDA-Public Use
  Company Number: US-ROCHE-1296687

PATIENT
  Age: 56 Year
  Sex: Female

DRUGS (4)
  1. RIBASPHERE [Concomitant]
     Active Substance: RIBAVIRIN
     Dosage: PM
     Route: 048
     Dates: start: 20131004
  2. RIBASPHERE [Concomitant]
     Active Substance: RIBAVIRIN
     Indication: HEPATITIS C
     Dosage: AM
     Route: 048
     Dates: start: 20131004
  3. INCIVEK [Concomitant]
     Active Substance: TELAPREVIR
     Indication: HEPATITIS C
     Route: 065
     Dates: start: 20131004, end: 201401
  4. PEGASYS [Suspect]
     Active Substance: PEGINTERFERON ALFA-2A
     Indication: HEPATITIS C
     Route: 058
     Dates: start: 20131004

REACTIONS (6)
  - Nausea [Unknown]
  - Thirst [Unknown]
  - Malaise [Unknown]
  - Emotional distress [Unknown]
  - Injection site dryness [Not Recovered/Not Resolved]
  - Dry skin [Not Recovered/Not Resolved]

NARRATIVE: CASE EVENT DATE: 20140117
